FAERS Safety Report 6260121-8 (Version None)
Quarter: 2009Q3

REPORT INFORMATION
  Report Type: 
  Country: None (occurrence: None)
  Receive Date: 20090708
  Receipt Date: 20090629
  Transmission Date: 20100115
  Serious: Yes (Hospitalization)
  Sender: FDA-Public Use
  Company Number: US-ELI_LILLY_AND_COMPANY-US200905001331

PATIENT
  Sex: Female

DRUGS (6)
  1. HUMALOG [Suspect]
     Indication: TYPE 1 DIABETES MELLITUS
     Dosage: UNK, UNK
     Route: 058
     Dates: start: 20020101
  2. NAPROSYN [Concomitant]
  3. PRILOSEC [Concomitant]
  4. LANTUS [Concomitant]
     Dosage: 45 U, UNK
  5. NOVOLOG [Concomitant]
  6. LEVAQUIN [Concomitant]
     Dosage: 500 MG, UNK

REACTIONS (6)
  - BLOOD GLUCOSE INCREASED [None]
  - DIABETIC KETOACIDOSIS [None]
  - HYPERKALAEMIA [None]
  - HYPOKALAEMIA [None]
  - LETHARGY [None]
  - UNRESPONSIVE TO STIMULI [None]
